FAERS Safety Report 8662311 (Version 2)
Quarter: 2012Q4

REPORT INFORMATION
  Report Type: 
  Country: US (occurrence: US)
  Receive Date: 20120712
  Receipt Date: 20120914
  Transmission Date: 20130627
  Serious: Yes (Other)
  Sender: FDA-Public Use
  Company Number: US-ROCHE-1086821

PATIENT
  Sex: Male
  Weight: 67.19 kg

DRUGS (14)
  1. XELODA [Suspect]
     Indication: COLON CANCER METASTATIC
     Route: 065
     Dates: start: 20120404, end: 20120517
  2. AVASTIN [Concomitant]
     Route: 042
     Dates: start: 20110517
  3. ELOXATIN [Concomitant]
     Route: 042
     Dates: start: 20120404
  4. LEUCOVORIN [Concomitant]
     Route: 042
     Dates: start: 20110517
  5. 5-FU [Concomitant]
     Route: 040
     Dates: start: 20110517
  6. 5-FU [Concomitant]
     Route: 041
     Dates: start: 20110517
  7. ALOXI [Concomitant]
     Route: 042
     Dates: start: 20120404
  8. DECADRON [Concomitant]
     Route: 042
     Dates: start: 20120404
  9. CALCIUM GLUCONATE [Concomitant]
     Route: 042
     Dates: start: 20120404
  10. ATIVAN [Concomitant]
     Route: 042
     Dates: start: 20110228
  11. OXYIR [Concomitant]
     Route: 065
     Dates: start: 20110503
  12. EMLA [Concomitant]
     Route: 061
     Dates: start: 20120328
  13. CAMPTOSAR [Concomitant]
     Route: 065
     Dates: start: 20120807
  14. LORTAB [Concomitant]
     Route: 048
     Dates: start: 20120807

REACTIONS (1)
  - Disease progression [Unknown]
